FAERS Safety Report 13104709 (Version 1)
Quarter: 2017Q1

REPORT INFORMATION
  Report Type: Report from Study
  Country: US (occurrence: US)
  Receive Date: 20170111
  Receipt Date: 20170111
  Transmission Date: 20170428
  Serious: Yes (Other)
  Sender: FDA-Public Use
  Company Number: US-VIIV HEALTHCARE LIMITED-US2017GSK001548

PATIENT
  Age: 58 Year

DRUGS (4)
  1. NORVIR [Concomitant]
     Active Substance: RITONAVIR
  2. TRUVADA [Suspect]
     Active Substance: EMTRICITABINE\TENOFOVIR DISOPROXIL FUMARATE
     Indication: HIV INFECTION
     Dosage: UNK
  3. DOLUTEGRAVIR [Suspect]
     Active Substance: DOLUTEGRAVIR
     Indication: HIV INFECTION
     Dosage: UNK
     Dates: start: 201511
  4. PREZISTA [Concomitant]
     Active Substance: DARUNAVIR ETHANOLATE

REACTIONS (6)
  - Skeletal injury [Unknown]
  - Overdose [Unknown]
  - Bone pain [Not Recovered/Not Resolved]
  - Multiple fractures [Unknown]
  - Foot fracture [Unknown]
  - Hand fracture [Unknown]
